FAERS Safety Report 19485242 (Version 1)
Quarter: 2021Q3

REPORT INFORMATION
  Report Type: Spontaneous
  Country: US (occurrence: US)
  Receive Date: 20210702
  Receipt Date: 20210702
  Transmission Date: 20211014
  Serious: Yes (Hospitalization)
  Sender: FDA-Public Use
  Company Number: US-UNICHEM PHARMACEUTICALS (USA) INC-UCM202106-000577

PATIENT
  Age: 16 Year
  Sex: Female

DRUGS (1)
  1. TRAMADOL HCL [Suspect]
     Active Substance: TRAMADOL HYDROCHLORIDE
     Indication: INTENTIONAL OVERDOSE
     Dosage: ESTIMATED 27.8 TO 37 MG PER KG

REACTIONS (3)
  - Intentional overdose [Unknown]
  - Renal impairment [Recovering/Resolving]
  - Seizure [Recovering/Resolving]
